FAERS Safety Report 7032987-5 (Version None)
Quarter: 2010Q4

REPORT INFORMATION
  Report Type: 
  Country: None (occurrence: None)
  Receive Date: 20101007
  Receipt Date: 20100927
  Transmission Date: 20110411
  Serious: Yes (Hospitalization)
  Sender: FDA-Public Use
  Company Number: JP-AMGEN-KDC433621

PATIENT
  Age: 63 Year
  Sex: Male
  Weight: 57 kg

DRUGS (26)
  1. VECTIBIX [Suspect]
     Indication: COLORECTAL CANCER
     Route: 041
     Dates: start: 20100804, end: 20100804
  2. VECTIBIX [Suspect]
     Route: 041
     Dates: start: 20100824, end: 20100913
  3. IRINOTECAN HYDROCHLORIDE [Suspect]
     Indication: COLORECTAL CANCER
     Route: 041
     Dates: start: 20100804
  4. IRINOTECAN HYDROCHLORIDE [Suspect]
     Dates: start: 20100301, end: 20100601
  5. TAKEPRON OD TABLETS 15 [Concomitant]
     Route: 048
  6. HICEE GRANULES 25% [Concomitant]
     Route: 048
  7. FLUOROURACIL [Concomitant]
     Indication: COLORECTAL CANCER
     Route: 040
     Dates: start: 20100804
  8. FLUOROURACIL [Concomitant]
     Route: 041
     Dates: start: 20100804
  9. FLUOROURACIL [Concomitant]
     Dates: start: 20091001, end: 20091101
  10. CALCIUM LEVOFOLINATE [Concomitant]
     Indication: COLORECTAL CANCER
     Route: 041
     Dates: start: 20100804
  11. CALCIUM LEVOFOLINATE [Concomitant]
     Dates: start: 20091001, end: 20091101
  12. TSUMURA GOSHAJINKIGAN [Concomitant]
     Route: 048
  13. TSUMURA HOCHU EKKI-TO [Concomitant]
     Route: 048
  14. TSUMURA SHAKUYAKUKANZOUTOU [Concomitant]
     Route: 048
  15. LIVACT [Concomitant]
     Route: 048
  16. BAKTAR [Concomitant]
     Route: 048
  17. PREDONINE [Concomitant]
     Route: 048
  18. LASIX [Concomitant]
     Route: 048
  19. ALDACTONE [Concomitant]
     Route: 048
  20. URSO 250 [Concomitant]
     Route: 048
  21. MAGNESIUM OXIDE [Concomitant]
     Route: 048
  22. JUSO [Concomitant]
     Route: 048
  23. TSUMURA HANGESHASHINTO [Concomitant]
     Route: 048
  24. NAUZELIN [Concomitant]
     Route: 065
  25. ANTIHISTAMINES [Concomitant]
     Indication: PROPHYLAXIS
     Route: 065
  26. CORTICOSTEROIDS [Concomitant]
     Indication: PROPHYLAXIS
     Route: 065

REACTIONS (3)
  - LIP ULCERATION [None]
  - MOUTH ULCERATION [None]
  - WHITE BLOOD CELL COUNT DECREASED [None]
